FAERS Safety Report 24784418 (Version 1)
Quarter: 2024Q4

REPORT INFORMATION
  Report Type: Spontaneous
  Country: US (occurrence: None)
  Receive Date: 20241227
  Receipt Date: 20241227
  Transmission Date: 20250115
  Serious: Yes (Disabling, Other)
  Sender: Public
  Company Number: None

PATIENT
  Age: 82 Year
  Sex: Female
  Weight: 83.01 kg

DRUGS (13)
  1. METHOTREXATE [Suspect]
     Active Substance: METHOTREXATE
     Indication: Rheumatoid arthritis
     Dosage: FREQUENCY : WEEKLY;?
     Route: 048
     Dates: start: 20240929, end: 20240929
  2. TELMISARTAN [Concomitant]
     Active Substance: TELMISARTAN
  3. ELIQUIS [Concomitant]
     Active Substance: APIXABAN
  4. Levothyvoxine [Concomitant]
  5. LIOTHYRONINE SODIUM [Concomitant]
     Active Substance: LIOTHYRONINE SODIUM
  6. PROPAFENONE [Concomitant]
     Active Substance: PROPAFENONE
  7. JARDIANCE [Concomitant]
     Active Substance: EMPAGLIFLOZIN
  8. DEXILANT [Concomitant]
     Active Substance: DEXLANSOPRAZOLE
  9. AMLODIPINE [Concomitant]
     Active Substance: AMLODIPINE BESYLATE
  10. ISOSORBIDE [Concomitant]
     Active Substance: ISOSORBIDE
  11. REPATHA [Concomitant]
     Active Substance: EVOLOCUMAB
  12. FUROSEMIDE [Concomitant]
     Active Substance: FUROSEMIDE
  13. RESTASIS [Concomitant]
     Active Substance: CYCLOSPORINE

REACTIONS (4)
  - Paraesthesia [None]
  - Hypoaesthesia [None]
  - Tremor [None]
  - Tremor [None]

NARRATIVE: CASE EVENT DATE: 20240929
